FAERS Safety Report 5650500-1 (Version None)
Quarter: 2008Q1

REPORT INFORMATION
  Report Type: 
  Country: None (occurrence: None)
  Receive Date: 20080304
  Receipt Date: 20080304
  Transmission Date: 20080703
  Serious: Yes (Hospitalization)
  Sender: FDA-Public Use
  Company Number: None

PATIENT
  Sex: Male

DRUGS (1)
  1. BREATHE RIGHT SNORE RELIEF (FORMULATION UNKNOWN) (BREATHE RIGHT SNORE [Suspect]

REACTIONS (2)
  - CONFUSIONAL STATE [None]
  - DISORIENTATION [None]
